FAERS Safety Report 5977332-9 (Version None)
Quarter: 2008Q4

REPORT INFORMATION
  Report Type: 
  Country: None (occurrence: None)
  Receive Date: 20081203
  Receipt Date: 20081124
  Transmission Date: 20090506
  Serious: Yes (Other)
  Sender: FDA-Public Use
  Company Number: PHHY2008IL29341

PATIENT

DRUGS (3)
  1. ACLASTA [Suspect]
     Indication: OSTEOPOROSIS
     Dosage: 5 MG, UNK
     Dates: start: 20081117, end: 20081117
  2. VITAMIN D [Concomitant]
  3. CALCIUM [Concomitant]

REACTIONS (2)
  - INFLUENZA LIKE ILLNESS [None]
  - SUPRAVENTRICULAR TACHYCARDIA [None]
